FAERS Safety Report 18996942 (Version 1)
Quarter: 2021Q1

REPORT INFORMATION
  Report Type: Spontaneous
  Country: US (occurrence: US)
  Receive Date: 20210310
  Receipt Date: 20210310
  Transmission Date: 20210420
  Serious: No
  Sender: FDA-Public Use
  Company Number: None

PATIENT
  Age: 68 Year
  Sex: Female

DRUGS (1)
  1. REMDESIVIR. [Suspect]
     Active Substance: REMDESIVIR
     Dates: start: 20210305, end: 20210305

REACTIONS (6)
  - Vision blurred [None]
  - Chills [None]
  - Diplopia [None]
  - Chest pain [None]
  - Bradycardia [None]
  - Body temperature decreased [None]
